FAERS Safety Report 4588076-2 (Version None)
Quarter: 2005Q1

REPORT INFORMATION
  Report Type: 
  Country: None (occurrence: None)
  Receive Date: 20050216
  Receipt Date: 20050201
  Transmission Date: 20050727
  Serious: Yes (Life-Threatening, Hospitalization)
  Sender: FDA-Public Use
  Company Number: EWC050242515

PATIENT
  Age: 64 Year
  Sex: Female

DRUGS (1)
  1. ALIMTA [Suspect]
     Indication: NON-SMALL CELL LUNG CANCER
     Dosage: 500 MG
     Dates: start: 20041125, end: 20041202

REACTIONS (6)
  - BLOOD ELECTROLYTES ABNORMAL [None]
  - DIARRHOEA [None]
  - NEUROTOXICITY [None]
  - OVERDOSE [None]
  - PERIPHERAL SENSORY NEUROPATHY [None]
  - TETANY [None]
